FAERS Safety Report 24943032 (Version 2)
Quarter: 2025Q2

REPORT INFORMATION
  Report Type: Spontaneous
  Country: US (occurrence: US)
  Receive Date: 20250207
  Receipt Date: 20250613
  Transmission Date: 20250716
  Serious: No
  Sender: ITALFARMACO SPA
  Company Number: US-ITALFARMACO SPA-2170715

PATIENT
  Age: 11 Year
  Sex: Male
  Weight: 70 kg

DRUGS (14)
  1. DUVYZAT [Suspect]
     Active Substance: GIVINOSTAT
     Indication: Duchenne muscular dystrophy
     Dates: start: 20241129
  2. FLUOXETINE [Concomitant]
     Active Substance: FLUOXETINE HYDROCHLORIDE
  3. SOLU-CORTEF [Concomitant]
     Active Substance: HYDROCORTISONE SODIUM SUCCINATE
  4. HYDROCORTISONE ACETATE [Concomitant]
     Active Substance: HYDROCORTISONE ACETATE
  5. ZOFRAN [Concomitant]
     Active Substance: ONDANSETRON HYDROCHLORIDE
  6. ZYRTEC [Concomitant]
     Active Substance: CETIRIZINE HYDROCHLORIDE
  7. ALBUTEROL [Concomitant]
     Active Substance: ALBUTEROL
  8. DEFLAZACORT [Concomitant]
     Active Substance: DEFLAZACORT
  9. VITAMINS [Concomitant]
     Active Substance: VITAMINS
  10. MIRALAX [Concomitant]
     Active Substance: POLYETHYLENE GLYCOL 3350
  11. EPLERENONE [Concomitant]
     Active Substance: EPLERENONE
  12. VITAMIN D [Concomitant]
     Active Substance: VITAMIN D NOS
  13. METOPROLOL [Concomitant]
     Active Substance: METOPROLOL
  14. LISINOPRIL [Concomitant]
     Active Substance: LISINOPRIL

REACTIONS (6)
  - Diarrhoea [Unknown]
  - Fall [Recovered/Resolved]
  - Ventricular extrasystoles [Unknown]
  - Epistaxis [Recovered/Resolved]
  - Platelet count decreased [Unknown]
  - Faeces discoloured [Unknown]
